FAERS Safety Report 8968967 (Version 2)
Quarter: 2012Q4

REPORT INFORMATION
  Report Type: 
  Country: MX (occurrence: MX)
  Receive Date: 20121217
  Receipt Date: 20121221
  Transmission Date: 20130627
  Serious: Yes (Other)
  Sender: FDA-Public Use
  Company Number: MX-BAXTER-2012BAX027352

PATIENT
  Age: 39 Year
  Sex: Male
  Weight: 73 kg

DRUGS (9)
  1. DIANEAL [Suspect]
     Indication: DIALYSIS
     Route: 033
  2. DIANEAL [Suspect]
     Route: 033
     Dates: start: 20121210, end: 20121211
  3. AMLODIPINE [Concomitant]
     Indication: HYPERTENSION
     Route: 048
  4. PRAZOSIN [Concomitant]
     Indication: HYPERTENSION
     Route: 048
  5. VITAMINS [Concomitant]
     Indication: DRUG USE FOR UNKNOWN INDICATION
     Route: 048
  6. CALCITRIOL [Concomitant]
     Indication: DRUG USE FOR UNKNOWN INDICATION
     Route: 048
  7. FOLIC ACID [Concomitant]
     Indication: DRUG USE FOR UNKNOWN INDICATION
     Route: 048
  8. OMEPRAZOLE [Concomitant]
     Indication: GASTRITIS
     Route: 048
  9. TRIMEBUTINE [Concomitant]
     Indication: DRUG USE FOR UNKNOWN INDICATION
     Route: 048

REACTIONS (4)
  - Renal pain [Recovered/Resolved]
  - Cough [Recovered/Resolved]
  - Abdominal distension [Recovered/Resolved]
  - Abdominal pain [Recovered/Resolved]
